FAERS Safety Report 7330174-4 (Version None)
Quarter: 2011Q1

REPORT INFORMATION
  Report Type: 
  Country: None (occurrence: None)
  Receive Date: 20110303
  Receipt Date: 20110224
  Transmission Date: 20110831
  Serious: Yes (Hospitalization)
  Sender: FDA-Public Use
  Company Number: US-US-EMD SERONO, INC.-7015472

PATIENT
  Sex: Male

DRUGS (3)
  1. REBIF [Suspect]
     Route: 058
     Dates: start: 20100101
  2. REBIF [Suspect]
     Route: 058
  3. REBIF [Suspect]
     Indication: MULTIPLE SCLEROSIS
     Route: 058
     Dates: start: 20071207, end: 20100101

REACTIONS (3)
  - WHITE BLOOD CELL COUNT DECREASED [None]
  - INJECTION SITE INFECTION [None]
  - MULTIPLE SCLEROSIS RELAPSE [None]
